FAERS Safety Report 5585920-7 (Version None)
Quarter: 2008Q1

REPORT INFORMATION
  Report Type: 
  Country: None (occurrence: None)
  Receive Date: 20080109
  Receipt Date: 20080103
  Transmission Date: 20080703
  Serious: Yes (Hospitalization)
  Sender: FDA-Public Use
  Company Number: MW-BOEHRINGER INGELHEIM PHARMACEUTICALS, INC.-2008-BP-00109BP

PATIENT
  Age: 28 Year
  Sex: Female
  Weight: 55 kg

DRUGS (7)
  1. VIRAMUNE [Suspect]
     Indication: HIV INFECTION
     Route: 048
     Dates: start: 20071012, end: 20071201
  2. ZIDOVUDINE [Suspect]
     Indication: HIV INFECTION
     Route: 048
     Dates: start: 20071018, end: 20071201
  3. ATAZANAVIR SULFATE [Suspect]
     Indication: HIV INFECTION
     Route: 048
     Dates: start: 20060908, end: 20071016
  4. TRUVADA [Suspect]
     Indication: HIV INFECTION
     Dosage: FTC 200/TDF 300 MG
     Route: 048
     Dates: start: 20071018, end: 20071130
  5. EMTRICITABINE [Suspect]
     Indication: HIV INFECTION
     Route: 048
     Dates: start: 20060908, end: 20071016
  6. DIDANOSINE [Suspect]
     Indication: HIV INFECTION
     Route: 048
     Dates: start: 20060908, end: 20071016
  7. FERROUS SULFATE TAB [Concomitant]

REACTIONS (1)
  - STILLBIRTH [None]
